FAERS Safety Report 25930553 (Version 1)
Quarter: 2025Q4

REPORT INFORMATION
  Report Type: Spontaneous
  Country: EU (occurrence: EU)
  Receive Date: 20251016
  Receipt Date: 20251016
  Transmission Date: 20260118
  Serious: Yes (Other)
  Sender: ELI LILLY AND COMPANY
  Company Number: None

PATIENT
  Age: 27 Year
  Sex: Male

DRUGS (3)
  1. DULOXETINE HYDROCHLORIDE [Suspect]
     Active Substance: DULOXETINE HYDROCHLORIDE
     Indication: Anxiety
     Dosage: 30 MG, DAILY
     Route: 048
     Dates: start: 202011
  2. DULOXETINE HYDROCHLORIDE [Suspect]
     Active Substance: DULOXETINE HYDROCHLORIDE
     Dosage: 60 MG, DAILY
     Route: 048
  3. DULOXETINE HYDROCHLORIDE [Suspect]
     Active Substance: DULOXETINE HYDROCHLORIDE
     Dosage: 90 MG, DAILY
     Route: 048
     Dates: start: 20210122, end: 202103

REACTIONS (19)
  - Angina pectoris [Unknown]
  - Suicidal ideation [Unknown]
  - Tearfulness [Unknown]
  - Eye movement disorder [Unknown]
  - Social problem [Unknown]
  - Personality disorder [Unknown]
  - Panic reaction [Unknown]
  - Depression [Unknown]
  - Flatulence [Unknown]
  - Malaise [Unknown]
  - Aggression [Unknown]
  - Tinnitus [Unknown]
  - Nightmare [Unknown]
  - Insomnia [Unknown]
  - Dizziness [Unknown]
  - Vomiting [Unknown]
  - Vision blurred [Unknown]
  - Apathy [Unknown]
  - Nausea [Unknown]

NARRATIVE: CASE EVENT DATE: 20201201
